FAERS Safety Report 13792015 (Version 1)
Quarter: 2017Q3

REPORT INFORMATION
  Report Type: Spontaneous
  Country: US (occurrence: US)
  Receive Date: 20170725
  Receipt Date: 20170725
  Transmission Date: 20171127
  Serious: No
  Sender: FDA-Public Use
  Company Number: US-ROCHE-1923261

PATIENT
  Sex: Female

DRUGS (1)
  1. OCREVUS [Suspect]
     Active Substance: OCRELIZUMAB
     Indication: MULTIPLE SCLEROSIS RELAPSE
     Dosage: YES
     Route: 041
     Dates: start: 20170419

REACTIONS (1)
  - Influenza like illness [Recovering/Resolving]

NARRATIVE: CASE EVENT DATE: 20170420
